FAERS Safety Report 8055163-6 (Version None)
Quarter: 2012Q1

REPORT INFORMATION
  Report Type: 
  Country: None (occurrence: None)
  Receive Date: 20120119
  Receipt Date: 20120111
  Transmission Date: 20120608
  Serious: Yes (Hospitalization)
  Sender: FDA-Public Use
  Company Number: US-BRISTOL-MYERS SQUIBB COMPANY-16346983

PATIENT

DRUGS (1)
  1. YERVOY [Suspect]

REACTIONS (2)
  - HYPOPHAGIA [None]
  - DIARRHOEA [None]
